FAERS Safety Report 8823806 (Version 1)
Quarter: 2012Q4

REPORT INFORMATION
  Report Type: 
  Country: US (occurrence: US)
  Receive Date: 20121003
  Receipt Date: 20121003
  Transmission Date: 20130627
  Serious: No
  Sender: FDA-Public Use
  Company Number: US-ASTRAZENECA-2012SE73991

PATIENT
  Age: 19 Year
  Sex: Female
  Weight: 93 kg

DRUGS (9)
  1. SEROQUEL [Suspect]
     Indication: BIPOLAR DISORDER
     Route: 048
     Dates: start: 2004
  2. SEROQUEL [Suspect]
     Indication: SLEEP DISORDER
     Route: 048
     Dates: start: 2004
  3. SEROQUEL [Suspect]
     Indication: BIPOLAR DISORDER
     Route: 048
  4. SEROQUEL [Suspect]
     Indication: SLEEP DISORDER
     Route: 048
  5. SEROQUEL [Suspect]
     Indication: BIPOLAR DISORDER
     Route: 048
  6. SEROQUEL [Suspect]
     Indication: SLEEP DISORDER
     Route: 048
  7. WELLBUTRIN [Concomitant]
     Indication: DEPRESSION
  8. CYMBALTA [Concomitant]
     Indication: DEPRESSION
  9. LAMICTAL [Concomitant]
     Indication: MOOD SWINGS

REACTIONS (6)
  - Nausea [Unknown]
  - Insomnia [Unknown]
  - Weight decreased [Unknown]
  - Vomiting [Unknown]
  - Weight increased [Unknown]
  - Drug dose omission [Unknown]
